FAERS Safety Report 9142351 (Version 1)
Quarter: 2013Q1

REPORT INFORMATION
  Report Type: Spontaneous
  Country: US (occurrence: US)
  Receive Date: 20130306
  Receipt Date: 20130306
  Transmission Date: 20140127
  Serious: No
  Sender: FDA-Public Use
  Company Number: US-009507513-1302USA011872

PATIENT
  Sex: Male
  Weight: 102.49 kg

DRUGS (4)
  1. VICTRELIS [Suspect]
     Indication: HEPATITIS C
     Dosage: TAKE 800MG (4 CAPSULES) BY MOUTH THREE TIMES A DAY (EVERY 7- 9 HOURS). START ON WEEK 5
     Route: 048
  2. PEG-INTRON [Suspect]
     Indication: HEPATITIS C
     Dosage: 150 MCG/0.5ML
     Route: 058
  3. RIBAPAK [Suspect]
     Dosage: 600/DAY
  4. ADVIL [Concomitant]
     Dosage: UNK

REACTIONS (5)
  - Injection site reaction [Unknown]
  - Injection site rash [Unknown]
  - Injection site pruritus [Unknown]
  - Headache [Unknown]
  - Influenza like illness [Unknown]
